FAERS Safety Report 7790184-X (Version None)
Quarter: 2011Q3

REPORT INFORMATION
  Report Type: 
  Country: None (occurrence: None)
  Receive Date: 20110930
  Receipt Date: 20100907
  Transmission Date: 20111222
  Serious: No
  Sender: FDA-Public Use
  Company Number: US-ASTRAZENECA-2010SE41960

PATIENT
  Age: 81 Year
  Sex: Female

DRUGS (5)
  1. BENACAR [Concomitant]
  2. ZOMETA INFUSION [Concomitant]
  3. ARIMIDEX [Suspect]
     Route: 048
     Dates: start: 20100907
  4. SYNTHROID [Concomitant]
  5. ARIMIDEX [Suspect]
     Indication: BREAST CANCER
     Route: 048
     Dates: end: 20100706

REACTIONS (1)
  - EPHELIDES [None]
